FAERS Safety Report 24809937 (Version 1)
Quarter: 2025Q1

REPORT INFORMATION
  Report Type: Spontaneous
  Country: US (occurrence: None)
  Receive Date: 20250104
  Receipt Date: 20250104
  Transmission Date: 20250409
  Serious: Yes (Hospitalization)
  Sender: FDA-CTU
  Company Number: None

PATIENT
  Age: 4 Year
  Sex: Male
  Weight: 14.5 kg

DRUGS (4)
  1. CALASPARGASE PEGOL-MKNL [Suspect]
     Active Substance: CALASPARGASE PEGOL-MKNL
     Dates: start: 20241212, end: 20241212
  2. DOXORUBICIN HYDROCHLORIDE [Suspect]
     Active Substance: DOXORUBICIN HYDROCHLORIDE
     Dates: end: 20241223
  3. METHOTREXATE [Suspect]
     Active Substance: METHOTREXATE
     Dates: end: 20241209
  4. VINCRISTINE SULFATE [Suspect]
     Active Substance: VINCRISTINE SULFATE
     Dates: end: 20241223

REACTIONS (9)
  - Dehydration [None]
  - Hypophagia [None]
  - Fatigue [None]
  - Neutropenia [None]
  - Oral pain [None]
  - Swelling face [None]
  - Gingival erythema [None]
  - Abdominal pain [None]
  - Stomatitis [None]

NARRATIVE: CASE EVENT DATE: 20250102
